FAERS Safety Report 5008732-1 (Version None)
Quarter: 2006Q2

REPORT INFORMATION
  Report Type: 
  Country: None (occurrence: None)
  Receive Date: 20060523
  Receipt Date: 20060512
  Transmission Date: 20061013
  Serious: Yes (Death, Hospitalization)
  Sender: FDA-Public Use
  Company Number: FI-GLAXOSMITHKLINE-B0423774A

PATIENT
  Age: 68 Year
  Sex: Female

DRUGS (6)
  1. PANADOL TABLETS [Suspect]
     Route: 048
     Dates: start: 20051021, end: 20051129
  2. ZOCOR [Suspect]
     Dosage: 80MG PER DAY
     Route: 048
     Dates: end: 20051129
  3. PRIMASPAN [Concomitant]
     Dosage: 100MG PER DAY
     Route: 048
  4. EMCONCOR [Concomitant]
     Dosage: 2.5MG TWICE PER DAY
     Route: 048
  5. CARDACE [Concomitant]
     Dosage: 10MG PER DAY
     Route: 048
  6. EZETROL [Concomitant]

REACTIONS (6)
  - ASTHENIA [None]
  - ENCEPHALOPATHY [None]
  - FATIGUE [None]
  - HEPATIC FAILURE [None]
  - NAUSEA [None]
  - VOMITING [None]
